FAERS Safety Report 6234213-3 (Version None)
Quarter: 2009Q2

REPORT INFORMATION
  Report Type: 
  Country: None (occurrence: None)
  Receive Date: 20090615
  Receipt Date: 20090323
  Transmission Date: 20091009
  Serious: Yes (Other)
  Sender: FDA-Public Use
  Company Number: 0903817US

PATIENT
  Age: 17 Year
  Sex: Female

DRUGS (4)
  1. ACZONE [Suspect]
     Indication: ACNE
     Dosage: BID, TOPICAL
     Route: 061
     Dates: start: 20090301, end: 20090323
  2. ZANTAC [Concomitant]
  3. MIGRALEVE (CODEINE PHOSPHATE, PARACETAMOL) [Concomitant]
  4. VYNANSE [Concomitant]

REACTIONS (1)
  - DEPRESSION [None]
